FAERS Safety Report 19097239 (Version 3)
Quarter: 2021Q3

REPORT INFORMATION
  Report Type: Report from Study
  Country: BE (occurrence: BE)
  Receive Date: 20210406
  Receipt Date: 20210802
  Transmission Date: 20211014
  Serious: Yes (Death, Hospitalization, Other)
  Sender: FDA-Public Use
  Company Number: BE-PFIZER INC-2021311247

PATIENT
  Age: 58 Year
  Sex: Female
  Weight: 75 kg

DRUGS (43)
  1. CARBOPLATIN. [Suspect]
     Active Substance: CARBOPLATIN
     Indication: SMALL CELL LUNG CANCER EXTENSIVE STAGE
     Dosage: 556 MG
     Route: 065
     Dates: start: 20200720
  2. PARACETAMOL [Concomitant]
     Active Substance: ACETAMINOPHEN
     Indication: NEOPLASM PROGRESSION
     Dosage: UNK
     Dates: start: 20200911, end: 20201005
  3. SODIUM BICARBONATE. [Concomitant]
     Active Substance: SODIUM BICARBONATE
     Indication: NEOPLASM PROGRESSION
     Dosage: UNK
     Dates: start: 20210124
  4. METHYLPREDNISOLON [METHYLPREDNISOLONE] [Concomitant]
     Active Substance: METHYLPREDNISOLONE
     Dosage: UNK, 1X/MIN
     Dates: start: 20200721, end: 20201105
  5. STEOVIT D3 [Concomitant]
     Active Substance: CALCIUM CARBONATE\CHOLECALCIFEROL
     Dosage: UNK, 1X/DAY
     Dates: start: 20200928
  6. TOPOTECAN [Concomitant]
     Active Substance: TOPOTECAN HYDROCHLORIDE
     Dosage: UNK
     Dates: start: 20201218, end: 20210112
  7. CARBOCISTEINE [Concomitant]
     Active Substance: CARBOCYSTEINE
     Dosage: UNK, 3X/DAY
     Dates: start: 20200731, end: 20200803
  8. PANTOPRAZOL [PANTOPRAZOLE] [Concomitant]
     Active Substance: PANTOPRAZOLE
     Indication: PROPHYLAXIS
     Dosage: UNK, 1X/DAY (NEXT DOSE ON 24JAN2021)
     Dates: start: 20200717, end: 20210123
  9. FUROSEMIDE. [Concomitant]
     Active Substance: FUROSEMIDE
     Indication: PROPHYLAXIS
     Dosage: UNK
     Dates: start: 20200720, end: 20200723
  10. FUROSEMIDE. [Concomitant]
     Active Substance: FUROSEMIDE
     Dosage: UNK
     Dates: start: 20210124, end: 20210124
  11. ETHYLMORPHINE [Concomitant]
     Active Substance: ETHYLMORPHINE
     Dosage: UNK, 1X/DAY
     Dates: start: 20200805
  12. POTASSIUM GLUCONATE [Concomitant]
     Active Substance: POTASSIUM GLUCONATE
     Dosage: UNK UNK, 3X/DAY
     Dates: start: 20210120
  13. MORFINE [Concomitant]
     Active Substance: MORPHINE
     Indication: NEOPLASM PROGRESSION
     Dosage: UNK
     Dates: start: 20210124
  14. CEFAZOLINE [CEFAZOLIN] [Concomitant]
     Active Substance: CEFAZOLIN
     Dosage: UNK, 1X/DAY
     Dates: start: 20200723, end: 20200723
  15. MAGNESIUM GLUCONATE [Concomitant]
     Active Substance: MAGNESIUM GLUCONATE
     Dosage: UNK, MONTHLY
     Dates: start: 20200721, end: 20201113
  16. MIDAZOLAM. [Concomitant]
     Active Substance: MIDAZOLAM
     Indication: NEOPLASM PROGRESSION
     Dosage: UNK
     Dates: start: 20210125
  17. ATEZOLIZUMAB. [Suspect]
     Active Substance: ATEZOLIZUMAB
     Dosage: 1200 MG, EVERY 3 WEEKS
     Route: 042
     Dates: start: 20201123
  18. ETOPOSIDE. [Suspect]
     Active Substance: ETOPOSIDE
     Indication: SMALL CELL LUNG CANCER EXTENSIVE STAGE
     Dosage: 145 MG
     Route: 065
     Dates: start: 20200720
  19. PARACETAMOL [Concomitant]
     Active Substance: ACETAMINOPHEN
     Dosage: UNK
     Dates: start: 20210125
  20. LIDOCAINE. [Concomitant]
     Active Substance: LIDOCAINE
     Dosage: UNK
     Dates: start: 20210113, end: 20210113
  21. LIPEGFILGRASTIM [Concomitant]
     Active Substance: LIPEGFILGRASTIM
     Dosage: UNK
     Dates: start: 20201223, end: 20210113
  22. INFLUENZA [Concomitant]
     Active Substance: INFLUENZA VIRUS VACCINE
     Dosage: UNK, 1X/DAY
     Dates: start: 20201123, end: 20201123
  23. LORAZEPAM. [Concomitant]
     Active Substance: LORAZEPAM
     Dosage: UNK, 1X/DAY
     Dates: start: 20200805
  24. ALLOPURINOL. [Concomitant]
     Active Substance: ALLOPURINOL
     Indication: PROPHYLAXIS
     Dosage: UNK, 1X/DAY
     Dates: start: 20200717
  25. ALIZAPRIDE [Concomitant]
     Active Substance: ALIZAPRIDE
     Dosage: UNK, 1X/DAY
     Dates: start: 20200902, end: 20200902
  26. ATEZOLIZUMAB. [Suspect]
     Active Substance: ATEZOLIZUMAB
     Dosage: 1200 MG, EVERY 3 WEEKS
     Route: 042
     Dates: start: 20200720
  27. ATEZOLIZUMAB. [Suspect]
     Active Substance: ATEZOLIZUMAB
     Dosage: 1200 MG, EVERY 3 WEEKS
     Route: 042
     Dates: start: 20201012
  28. ATEZOLIZUMAB. [Suspect]
     Active Substance: ATEZOLIZUMAB
     Dosage: 1200 MG, EVERY 3 WEEKS
     Route: 042
     Dates: start: 20200921
  29. KALIUMCHLORIDE [Concomitant]
     Dosage: UNK
     Dates: start: 20200724, end: 20200728
  30. LIPEGFILGRASTIM [Concomitant]
     Active Substance: LIPEGFILGRASTIM
     Dosage: UNK, 1X/MIN
     Dates: start: 20200723, end: 20201105
  31. POTASSIUM GLUCONATE [Concomitant]
     Active Substance: POTASSIUM GLUCONATE
     Dosage: UNK, EVERY 4 DAYS
     Dates: start: 20200724, end: 20200727
  32. PANTOPRAZOL [PANTOPRAZOLE] [Concomitant]
     Active Substance: PANTOPRAZOLE
     Dosage: UNK
     Dates: start: 20201214, end: 20210124
  33. ATEZOLIZUMAB. [Suspect]
     Active Substance: ATEZOLIZUMAB
     Indication: SMALL CELL LUNG CANCER EXTENSIVE STAGE
     Dosage: 1200 MG, EVERY 3 WEEKS
     Route: 042
     Dates: start: 20200720
  34. ATEZOLIZUMAB. [Suspect]
     Active Substance: ATEZOLIZUMAB
     Dosage: 1200 MG, EVERY 3 WEEKS
     Route: 042
     Dates: start: 20200810
  35. ATEZOLIZUMAB. [Suspect]
     Active Substance: ATEZOLIZUMAB
     Dosage: 1200 MG, EVERY 3 WEEKS
     Route: 042
     Dates: start: 20201102
  36. ATEZOLIZUMAB. [Suspect]
     Active Substance: ATEZOLIZUMAB
     Dosage: 1200 MG, EVERY 3 WEEKS
     Route: 042
     Dates: start: 20201214
  37. CHLORHEXIDINE [Concomitant]
     Active Substance: CHLORHEXIDINE
     Dosage: UNK
     Dates: start: 20201023
  38. FYTOMENADION [Concomitant]
     Active Substance: PHYTONADIONE
     Dosage: UNK
     Dates: start: 20210124, end: 20210124
  39. ESTRADIOL. [Concomitant]
     Active Substance: ESTRADIOL
     Dosage: UNK
     Dates: start: 20201214, end: 20210124
  40. PROGESTERONE. [Concomitant]
     Active Substance: PROGESTERONE
     Dosage: UNK
     Dates: start: 20201214, end: 20210124
  41. PANTOPRAZOL [PANTOPRAZOLE] [Concomitant]
     Active Substance: PANTOPRAZOLE
     Dosage: UNK
     Dates: start: 20210124
  42. KALIUMCHLORIDE [Concomitant]
     Dosage: UNK
     Dates: start: 20210120, end: 20210120
  43. ERYTHROMYCINE [ERYTHROMYCIN] [Concomitant]
     Active Substance: ERYTHROMYCIN
     Indication: PROPHYLAXIS
     Dosage: UNK
     Dates: start: 20210125

REACTIONS (11)
  - Hypothyroidism [Recovering/Resolving]
  - Epistaxis [Recovered/Resolved]
  - Diarrhoea [Recovered/Resolved]
  - Anaemia [Recovering/Resolving]
  - Abdominal pain [Recovering/Resolving]
  - Thrombocytopenia [Recovered/Resolved]
  - Onychoclasis [Recovering/Resolving]
  - Ascites [Not Recovered/Not Resolved]
  - Death [Fatal]
  - Hypokalaemia [Recovered/Resolved]
  - Pruritus [Recovering/Resolving]

NARRATIVE: CASE EVENT DATE: 20201207
